FAERS Safety Report 18431237 (Version 1)
Quarter: 2020Q4

REPORT INFORMATION
  Report Type: Spontaneous
  Country: US (occurrence: US)
  Receive Date: 20201027
  Receipt Date: 20201027
  Transmission Date: 20210114
  Serious: No
  Sender: FDA-Public Use
  Company Number: None

PATIENT
  Sex: Male

DRUGS (2)
  1. METOCLOPRAMIDE. [Suspect]
     Active Substance: METOCLOPRAMIDE
  2. FAMOTIDINE. [Suspect]
     Active Substance: FAMOTIDINE

REACTIONS (3)
  - Product label confusion [None]
  - Intercepted product dispensing error [None]
  - Product use complaint [None]

NARRATIVE: CASE EVENT DATE: 20201026
